FAERS Safety Report 10312175 (Version 1)
Quarter: 2014Q3

REPORT INFORMATION
  Report Type: Spontaneous
  Country: US (occurrence: US)
  Receive Date: 20140718
  Receipt Date: 20140718
  Transmission Date: 20150326
  Serious: Yes (Hospitalization, Other)
  Sender: FDA-Public Use
  Company Number: US-AMGEN INC.-USASP2014052904

PATIENT
  Age: 33 Year
  Sex: Female

DRUGS (1)
  1. ENBREL [Suspect]
     Active Substance: ETANERCEPT
     Indication: RHEUMATOID ARTHRITIS
     Dosage: UNK
     Route: 065
     Dates: start: 2001, end: 2006

REACTIONS (13)
  - Pain [Not Recovered/Not Resolved]
  - Nerve injury [Recovered/Resolved]
  - Joint swelling [Unknown]
  - Mobility decreased [Not Recovered/Not Resolved]
  - Arthropathy [Recovered/Resolved]
  - Peripheral swelling [Not Recovered/Not Resolved]
  - Joint stiffness [Unknown]
  - Condition aggravated [Not Recovered/Not Resolved]
  - Rotator cuff syndrome [Recovered/Resolved]
  - Hyperaesthesia [Not Recovered/Not Resolved]
  - Arthralgia [Unknown]
  - Joint warmth [Unknown]
  - Finger deformity [Not Recovered/Not Resolved]

NARRATIVE: CASE EVENT DATE: 2005
